FAERS Safety Report 4621816-2 (Version None)
Quarter: 2005Q1

REPORT INFORMATION
  Report Type: 
  Country: None (occurrence: None)
  Receive Date: 20050329
  Receipt Date: 20041019
  Transmission Date: 20050727
  Serious: Yes (Hospitalization)
  Sender: FDA-Public Use
  Company Number: 200413304JP

PATIENT
  Age: 39 Year
  Sex: Male
  Weight: 86 kg

DRUGS (9)
  1. LASIX [Suspect]
     Indication: CARDIAC FAILURE
     Route: 048
     Dates: start: 20041013, end: 20041013
  2. FOSMICIN [Suspect]
     Route: 041
     Dates: start: 20041012, end: 20041014
  3. HUMALOG [Concomitant]
     Dosage: DOSE: 7-7-7-0
     Route: 048
  4. PENFILL N [Concomitant]
     Dosage: DOSE: 0-0-0-8
     Route: 048
  5. RENIVEZE                                /JPN/ [Concomitant]
     Route: 048
  6. PHENOBAL [Concomitant]
     Route: 048
  7. LIPITOR [Concomitant]
     Route: 048
  8. EURODIN [Concomitant]
     Route: 048
  9. BENZALIN [Concomitant]
     Route: 048

REACTIONS (15)
  - BLOOD ALKALINE PHOSPHATASE INCREASED [None]
  - BLOOD CREATININE INCREASED [None]
  - BLOOD GLUCOSE INCREASED [None]
  - BLOOD LACTATE DEHYDROGENASE INCREASED [None]
  - BLOOD UREA INCREASED [None]
  - DIARRHOEA [None]
  - DRUG ERUPTION [None]
  - EOSINOPHIL PERCENTAGE INCREASED [None]
  - HAEMATOCRIT DECREASED [None]
  - HAEMOGLOBIN DECREASED [None]
  - NEUTROPHIL PERCENTAGE INCREASED [None]
  - OLIGURIA [None]
  - PLATELET COUNT DECREASED [None]
  - RASH [None]
  - RENAL DISORDER [None]
